FAERS Safety Report 9369551 (Version 1)
Quarter: 2013Q2

REPORT INFORMATION
  Report Type: Spontaneous
  Country: AE (occurrence: AE)
  Receive Date: 20130626
  Receipt Date: 20130626
  Transmission Date: 20140414
  Serious: Yes (Hospitalization, Other)
  Sender: FDA-Public Use
  Company Number: AE-ELI_LILLY_AND_COMPANY-AE201306004925

PATIENT
  Age: 28 Year
  Sex: Female

DRUGS (2)
  1. HUMALOG 50% LISPRO, 50% NPL [Suspect]
     Indication: GESTATIONAL DIABETES
     Dosage: UNK UNK, UNKNOWN
     Route: 058
     Dates: start: 20130412
  2. FOLIC ACID [Concomitant]
     Dosage: 1 DF, QD

REACTIONS (2)
  - Abortion spontaneous [Recovering/Resolving]
  - Maternal exposure during pregnancy [Recovered/Resolved]
